FAERS Safety Report 9246842 (Version 1)
Quarter: 2013Q2

REPORT INFORMATION
  Report Type: Report from Study
  Country: DE (occurrence: DE)
  Receive Date: 20130422
  Receipt Date: 20130424
  Transmission Date: 20140414
  Serious: Yes (Hospitalization, Other)
  Sender: FDA-Public Use
  Company Number: DE-ABBOTT-13P-062-1077936-00

PATIENT
  Age: 55 Year
  Sex: Female
  Weight: 79 kg

DRUGS (9)
  1. HUMIRA [Suspect]
     Indication: CROHN^S DISEASE
     Route: 058
     Dates: start: 20101006, end: 20130211
  2. METHOTREXATE [Suspect]
     Indication: PRODUCT USED FOR UNKNOWN INDICATION
     Route: 058
  3. PREDNISOLONE (DECORTIN) [Suspect]
     Indication: PRODUCT USED FOR UNKNOWN INDICATION
     Route: 048
     Dates: start: 20120830, end: 20130211
  4. PREDNISOLONE (DECORTIN) [Suspect]
     Dates: start: 20130226
  5. METOPROLOL [Concomitant]
     Indication: PRODUCT USED FOR UNKNOWN INDICATION
  6. METAMIZOLE SODIUM [Concomitant]
     Indication: PRODUCT USED FOR UNKNOWN INDICATION
  7. PANTOPRAZOLE [Concomitant]
     Indication: PRODUCT USED FOR UNKNOWN INDICATION
  8. VITAMIN D [Concomitant]
     Indication: PRODUCT USED FOR UNKNOWN INDICATION
  9. ENOXAPARIN NA [Concomitant]
     Indication: PRODUCT USED FOR UNKNOWN INDICATION
     Route: 058
     Dates: start: 20130211, end: 20130226

REACTIONS (11)
  - Gastrointestinal necrosis [Unknown]
  - Anal abscess [Not Recovered/Not Resolved]
  - Inflammation [Unknown]
  - Colostomy [Unknown]
  - Enterostomy [Unknown]
  - Fistula [Unknown]
  - Acute hepatitis B [Unknown]
  - Gastrointestinal stoma complication [Unknown]
  - Sepsis [Unknown]
  - Prerenal failure [Unknown]
  - Post procedural haemorrhage [Unknown]
